FAERS Safety Report 9237992 (Version 1)
Quarter: 2013Q2

REPORT INFORMATION
  Report Type: Spontaneous
  Country: US (occurrence: US)
  Receive Date: 20130418
  Receipt Date: 20130418
  Transmission Date: 20140414
  Serious: No
  Sender: FDA-Public Use
  Company Number: US-009507513-1304USA008561

PATIENT
  Sex: Female

DRUGS (10)
  1. ASMANEX TWISTHALER [Suspect]
     Indication: COUGH
     Dosage: ONE PUFF
  2. SPIRIVA [Concomitant]
  3. VENTOLIN (ALBUTEROL) [Concomitant]
  4. SIMVASTATIN [Concomitant]
  5. RAMIPRIL [Concomitant]
  6. NITROGLYCERIN [Concomitant]
  7. ESTRADIOL [Concomitant]
  8. CARTEOLOL [Concomitant]
  9. PROTONIX [Concomitant]
  10. ASPIRIN [Concomitant]

REACTIONS (2)
  - Dysphonia [Not Recovered/Not Resolved]
  - Product quality issue [Unknown]
